FAERS Safety Report 4631128-9 (Version None)
Quarter: 2005Q2

REPORT INFORMATION
  Report Type: 
  Country: None (occurrence: None)
  Receive Date: 20050405
  Receipt Date: 20050405
  Transmission Date: 20051028
  Serious: Yes (Other)
  Sender: FDA-Public Use
  Company Number: None

PATIENT
  Sex: Female
  Weight: 54.4316 kg

DRUGS (3)
  1. IPRATROPIUM BROMIDE [Suspect]
     Indication: ASTHMA
     Dosage: 1 VIAL MIXED   ALBUTEROL PRN   RESPIRATOR
     Route: 055
     Dates: start: 20050329, end: 20050404
  2. IPRATROPIUM BROMIDE [Suspect]
     Indication: BRONCHITIS
     Dosage: 1 VIAL MIXED   ALBUTEROL PRN   RESPIRATOR
     Route: 055
     Dates: start: 20050329, end: 20050404
  3. ALBUTEROL [Concomitant]

REACTIONS (3)
  - BRONCHOSPASM [None]
  - COUGH [None]
  - PHARMACEUTICAL PRODUCT COMPLAINT [None]
